FAERS Safety Report 18815758 (Version 1)
Quarter: 2021Q1

REPORT INFORMATION
  Report Type: Spontaneous
  Country: US (occurrence: US)
  Receive Date: 20210201
  Receipt Date: 20210201
  Transmission Date: 20210419
  Serious: No
  Sender: FDA-Public Use
  Company Number: None

PATIENT
  Age: 90 Year
  Sex: Male
  Weight: 72.1 kg

DRUGS (1)
  1. BAMLANIVIMAB. [Suspect]
     Active Substance: BAMLANIVIMAB
     Indication: COVID-19
     Dosage: ?          OTHER FREQUENCY:ONCE;?
     Route: 042
     Dates: start: 20210129, end: 20210129

REACTIONS (6)
  - Nausea [None]
  - Pyrexia [None]
  - Retching [None]
  - Pain [None]
  - Fatigue [None]
  - Chills [None]

NARRATIVE: CASE EVENT DATE: 20210129
